FAERS Safety Report 6758772-7 (Version None)
Quarter: 2010Q2

REPORT INFORMATION
  Report Type: 
  Country: None (occurrence: None)
  Receive Date: 20100603
  Receipt Date: 20100522
  Transmission Date: 20101027
  Serious: Yes (Death, Other)
  Sender: FDA-Public Use
  Company Number: 2010AP001083

PATIENT
  Age: 42 Year
  Sex: Male

DRUGS (2)
  1. METFORMIN HCL [Suspect]
     Indication: DIABETES MELLITUS
     Dosage: 500 MG, BID
  2. CREATINE (CREATINE) [Suspect]
     Indication: MUSCLE BUILDING THERAPY
     Dosage: 5 GM; PO;QID, 5 GM; PO; QD
     Route: 048

REACTIONS (8)
  - BLOOD GLUCOSE INCREASED [None]
  - CARDIAC ARREST [None]
  - CONDITION AGGRAVATED [None]
  - DECREASED APPETITE [None]
  - LACTIC ACIDOSIS [None]
  - MALAISE [None]
  - RENAL FAILURE ACUTE [None]
  - SOMNOLENCE [None]
